FAERS Safety Report 21572035 (Version 1)
Quarter: 2022Q4

REPORT INFORMATION
  Report Type: Other
  Country: CA (occurrence: CA)
  Receive Date: 20221109
  Receipt Date: 20221109
  Transmission Date: 20230113
  Serious: Yes (Other)
  Sender: FDA-Public Use
  Company Number: CA-INTERCEPT-PM2019000158

PATIENT
  Age: 65 Year
  Sex: Female
  Weight: 82 kg

DRUGS (5)
  1. OCALIVA [Suspect]
     Active Substance: OBETICHOLIC ACID
     Indication: Primary biliary cholangitis
     Dosage: 5 MILLIGRAM, QD
     Route: 048
     Dates: start: 20181110, end: 20190321
  2. OCALIVA [Suspect]
     Active Substance: OBETICHOLIC ACID
     Dosage: 10 MILLIGRAM, QD
     Route: 048
     Dates: start: 20190321, end: 201904
  3. OCALIVA [Suspect]
     Active Substance: OBETICHOLIC ACID
     Dosage: 5 MILLIGRAM, QD
     Route: 048
     Dates: start: 201904
  4. VITAMIN D [Concomitant]
     Active Substance: VITAMIN D NOS
     Indication: Product used for unknown indication
     Dosage: UNK
  5. CALCIUM [Concomitant]
     Active Substance: CALCIUM
     Indication: Product used for unknown indication
     Dosage: UNK

REACTIONS (19)
  - Pneumonia [Unknown]
  - Glucose tolerance impaired [Not Recovered/Not Resolved]
  - Skin injury [Not Recovered/Not Resolved]
  - Flatulence [Unknown]
  - Cough [Not Recovered/Not Resolved]
  - Hyperchlorhydria [Unknown]
  - Weight decreased [Unknown]
  - Stress [Unknown]
  - Blood pressure increased [Unknown]
  - Arthritis [Unknown]
  - Trigger finger [Unknown]
  - Blood alkaline phosphatase increased [Not Recovered/Not Resolved]
  - Aspartate aminotransferase increased [Unknown]
  - Alanine aminotransferase increased [Unknown]
  - Constipation [Unknown]
  - Pruritus [Recovered/Resolved]
  - Abdominal pain upper [Unknown]
  - Gamma-glutamyltransferase increased [Unknown]
  - COVID-19 [Unknown]

NARRATIVE: CASE EVENT DATE: 20181220
